FAERS Safety Report 20507415 (Version 2)
Quarter: 2022Q2

REPORT INFORMATION
  Report Type: Spontaneous
  Country: US (occurrence: US)
  Receive Date: 20220223
  Receipt Date: 20220426
  Transmission Date: 20220721
  Serious: Yes (Other)
  Sender: FDA-Public Use
  Company Number: US-NOVARTISPH-NVSC2022US038574

PATIENT
  Sex: Female

DRUGS (2)
  1. ESTRADIOL [Suspect]
     Active Substance: ESTRADIOL
     Indication: Menopausal symptoms
     Dosage: UNK
     Route: 062
     Dates: end: 20211117
  2. MINIVELLE [Suspect]
     Active Substance: ESTRADIOL
     Indication: Product used for unknown indication
     Dosage: UNK
     Route: 062
     Dates: start: 2014

REACTIONS (7)
  - Colitis ulcerative [Recovered/Resolved]
  - Crying [Recovered/Resolved]
  - Blood pressure abnormal [Recovered/Resolved]
  - Hot flush [Recovered/Resolved]
  - Night sweats [Recovered/Resolved]
  - Blood pressure increased [Recovered/Resolved]
  - Weight decreased [Unknown]
